FAERS Safety Report 10173307 (Version 1)
Quarter: 2014Q2

REPORT INFORMATION
  Report Type: Spontaneous
  Country: CN (occurrence: CN)
  Receive Date: 20140515
  Receipt Date: 20140515
  Transmission Date: 20141212
  Serious: Yes (Other)
  Sender: FDA-Public Use
  Company Number: CN-BAXTER-2014BAX023344

PATIENT
  Age: 56 Year
  Sex: Male
  Weight: 60 kg

DRUGS (1)
  1. 20% MANNITOL INJECTION [Suspect]
     Indication: DEHYDRATION
     Route: 041
     Dates: start: 20130925, end: 20130926

REACTIONS (1)
  - Rash [Recovering/Resolving]
